FAERS Safety Report 17346421 (Version 1)
Quarter: 2020Q1

REPORT INFORMATION
  Report Type: Spontaneous
  Country: US (occurrence: US)
  Receive Date: 20200129
  Receipt Date: 20200129
  Transmission Date: 20200409
  Serious: Yes (Other)
  Sender: FDA-Public Use
  Company Number: None

PATIENT
  Age: 53 Year
  Sex: Male
  Weight: 109 kg

DRUGS (10)
  1. BUPROPION XL 300MG 24 HOUR TABLET [Concomitant]
  2. CHOLECALCIFEROL 50,000 UNIT CAPSULE [Concomitant]
  3. ALBUTEROL 2.5MG/3ML NEBULIZER SOLUTION [Concomitant]
  4. METHYLPHENIDATE 54MG CR TABLET [Concomitant]
  5. TRIKAFTA [Suspect]
     Active Substance: ELEXACAFTOR\IVACAFTOR\TEZACAFTOR
     Indication: CYSTIC FIBROSIS
     Dosage: ?          OTHER FREQUENCY:2 IN AM, 1 PM;?
     Route: 048
     Dates: start: 20200104
  6. COLISTIMETHATE 150MG INJECTABLE FOR INHALATION [Concomitant]
  7. LORATADINE 10MG [Concomitant]
     Active Substance: LORATADINE
  8. SODIUM CHLORIDE 7% NEB SOLUTION [Concomitant]
  9. ALBUTEROL 90MCG/ACTUATION INHALER [Concomitant]
  10. SYMBICORT 160-4.5MCG/ACTUATION INHALER [Concomitant]

REACTIONS (2)
  - Testicular pain [None]
  - Testicular swelling [None]

NARRATIVE: CASE EVENT DATE: 20200112
